FAERS Safety Report 8545797-4 (Version None)
Quarter: 2012Q3

REPORT INFORMATION
  Report Type: 
  Country: None (occurrence: None)
  Receive Date: 20120727
  Receipt Date: 20120719
  Transmission Date: 20120928
  Serious: Yes (Other)
  Sender: FDA-Public Use
  Company Number: CN-BAXTER-2012BAX012266

PATIENT
  Sex: Female

DRUGS (4)
  1. SODIUM CHLORIDE INJ [Suspect]
     Indication: LUNG INFECTION
  2. SODIUM CHLORIDE INJ [Suspect]
     Indication: EMPHYSEMA
     Route: 041
     Dates: start: 20100127, end: 20100127
  3. CEFODIZIME DISODIUM [Suspect]
     Indication: EMPHYSEMA
     Route: 042
  4. CEFODIZIME DISODIUM [Suspect]
     Indication: LUNG INFECTION

REACTIONS (4)
  - CHEYNE-STOKES RESPIRATION [None]
  - ALTERED STATE OF CONSCIOUSNESS [None]
  - CYANOSIS [None]
  - ANAPHYLACTIC SHOCK [None]
